FAERS Safety Report 24044193 (Version 1)
Quarter: 2024Q3

REPORT INFORMATION
  Report Type: Spontaneous
  Country: RS (occurrence: RS)
  Receive Date: 20240703
  Receipt Date: 20240703
  Transmission Date: 20241016
  Serious: Yes (Other)
  Sender: CHEPLAPHARM
  Company Number: RS-CHEPLA-2024008133

PATIENT
  Age: 43 Year
  Sex: Male

DRUGS (2)
  1. HYDROXYUREA [Suspect]
     Active Substance: HYDROXYUREA
     Indication: Polycythaemia vera
     Dosage: 1500-2000 MG/DL
  2. ASPIRIN [Suspect]
     Active Substance: ASPIRIN
     Indication: Polycythaemia vera

REACTIONS (9)
  - Disseminated cryptococcosis [Unknown]
  - Cryptococcosis [Unknown]
  - Cardiac failure [Unknown]
  - Myelofibrosis [Unknown]
  - Squamous cell carcinoma [Unknown]
  - West Nile virus test positive [Unknown]
  - Bradykinesia [Recovered/Resolved]
  - Bradyphrenia [Recovered/Resolved]
  - Varicose vein [Unknown]

NARRATIVE: CASE EVENT DATE: 20110101
